FAERS Safety Report 8428939 (Version 8)
Quarter: 2014Q1

REPORT INFORMATION
  Report Type: Report from Study
  Country: CA (occurrence: CA)
  Receive Date: 20120227
  Receipt Date: 20140106
  Transmission Date: 20141002
  Serious: Yes (Other)
  Sender: FDA-Public Use
  Company Number: PHHY2012CA010506

PATIENT
  Age: 62 Year
  Sex: Female

DRUGS (2)
  1. SANDOSTATIN LAR [Suspect]
     Indication: ANGIODYSPLASIA
     Dosage: 10 MG, QMO
     Route: 030
     Dates: start: 20120131
  2. SANDOSTATIN LAR [Suspect]
     Dosage: 10 MG, ONCE IN EVERY 4 WEEKS
     Route: 030

REACTIONS (21)
  - Multiple sclerosis [Unknown]
  - Cardiac disorder [Unknown]
  - Blood pressure decreased [Unknown]
  - Paraesthesia [Unknown]
  - Vision blurred [Unknown]
  - Syncope [Unknown]
  - Pain [Unknown]
  - Palpitations [Unknown]
  - Hunger [Unknown]
  - Hyperphagia [Unknown]
  - Quality of life decreased [Unknown]
  - Facial pain [Unknown]
  - Feeling abnormal [Unknown]
  - Visual impairment [Unknown]
  - Haemoglobin increased [Unknown]
  - Haemoglobin decreased [Unknown]
  - Malaise [Unknown]
  - Headache [Unknown]
  - Dyspnoea [Unknown]
  - Injection site pain [Unknown]
  - Dizziness [Unknown]
